FAERS Safety Report 21083895 (Version 1)
Quarter: 2022Q3

REPORT INFORMATION
  Report Type: Spontaneous
  Country: IL (occurrence: IL)
  Receive Date: 20220714
  Receipt Date: 20220714
  Transmission Date: 20221027
  Serious: No
  Sender: FDA-Public Use
  Company Number: IL-JAZZ-202112ILGW06120

PATIENT

DRUGS (1)
  1. EPIDIOLEX [Suspect]
     Active Substance: CANNABIDIOL
     Indication: Tuberous sclerosis complex
     Dosage: 5 MG/KG, QD
     Route: 048

REACTIONS (2)
  - Balance disorder [Unknown]
  - Seizure [Unknown]

NARRATIVE: CASE EVENT DATE: 20210101
